FAERS Safety Report 6439515-3 (Version None)
Quarter: 2009Q4

REPORT INFORMATION
  Report Type: 
  Country: None (occurrence: None)
  Receive Date: 20091113
  Receipt Date: 20091109
  Transmission Date: 20100525
  Serious: Yes (Other)
  Sender: FDA-Public Use
  Company Number: A0816079A

PATIENT
  Age: 45 Year
  Sex: Male

DRUGS (6)
  1. ADVAIR DISKUS 100/50 [Suspect]
     Indication: ASTHMA
     Dosage: 115MCG TWICE PER DAY
     Route: 055
     Dates: start: 20090301
  2. ERGIX [Concomitant]
  3. DIAVAN [Concomitant]
  4. PREVACID [Concomitant]
  5. OXYCONTIN [Concomitant]
  6. ALBUTEROL [Concomitant]

REACTIONS (4)
  - ARTHRALGIA [None]
  - FATIGUE [None]
  - GAIT DISTURBANCE [None]
  - IMPAIRED WORK ABILITY [None]
